FAERS Safety Report 14382712 (Version 1)
Quarter: 2018Q1

REPORT INFORMATION
  Report Type: Spontaneous
  Country: US (occurrence: US)
  Receive Date: 20180112
  Receipt Date: 20180112
  Transmission Date: 20180509
  Serious: No
  Sender: FDA-Public Use
  Company Number: US-ASTRAZENECA-2018SE02062

PATIENT
  Age: 781 Month
  Sex: Male
  Weight: 59.9 kg

DRUGS (2)
  1. MOVANTIK [Suspect]
     Active Substance: NALOXEGOL OXALATE
     Indication: CONSTIPATION
     Route: 048
     Dates: start: 201707
  2. MOVANTIK [Suspect]
     Active Substance: NALOXEGOL OXALATE
     Indication: CONSTIPATION
     Route: 048
     Dates: start: 201712

REACTIONS (8)
  - Drug withdrawal syndrome [Not Recovered/Not Resolved]
  - Irritability [Not Recovered/Not Resolved]
  - Malaise [Not Recovered/Not Resolved]
  - Lacrimation increased [Not Recovered/Not Resolved]
  - Off label use [Unknown]
  - Drug ineffective [Not Recovered/Not Resolved]
  - Yawning [Not Recovered/Not Resolved]
  - Anxiety [Not Recovered/Not Resolved]

NARRATIVE: CASE EVENT DATE: 201707
